FAERS Safety Report 6750282-6 (Version None)
Quarter: 2010Q2

REPORT INFORMATION
  Report Type: 
  Country: None (occurrence: None)
  Receive Date: 20100601
  Receipt Date: 20100524
  Transmission Date: 20101027
  Serious: Yes (Hospitalization)
  Sender: FDA-Public Use
  Company Number: US-PFIZER INC-2010064734

PATIENT
  Sex: Male

DRUGS (23)
  1. ZOLOFT [Suspect]
     Indication: DEPRESSION
     Dosage: 100 MG, 1X/DAY
     Route: 048
  2. MILNACIPRAN [Suspect]
     Indication: MYOFASCIAL PAIN SYNDROME
     Dosage: 25 MG, 2X/DAY
     Route: 048
     Dates: start: 20100107, end: 20100211
  3. MILNACIPRAN [Suspect]
     Indication: DIABETIC NEUROPATHY
     Dosage: 50 MG, 2X/DAY
     Route: 048
     Dates: start: 20100212
  4. FENTANYL [Suspect]
     Indication: MYOFASCIAL PAIN SYNDROME
     Dosage: UNK
     Route: 062
  5. FENTANYL [Suspect]
     Indication: DIABETIC NEUROPATHY
  6. NAMENDA [Concomitant]
     Dosage: UNK
  7. MIRALAX [Concomitant]
     Dosage: UNK
  8. AMITRIPTYLINE [Concomitant]
     Dosage: UNK
  9. PLAVIX [Concomitant]
     Dosage: 75 MG, 1X/DAY
     Route: 048
  10. LANTUS [Concomitant]
     Dosage: 100 UNITS, UNK
     Route: 058
  11. NORVASC [Concomitant]
     Dosage: 10 MG, 1X/DAY
     Route: 048
  12. AVALIDE [Concomitant]
     Dosage: UNK
  13. ACETYLSALICYLIC ACID [Concomitant]
     Dosage: UNK
  14. CADUET [Concomitant]
     Dosage: [AMLODIPINE BESILATE 10 MG]/ [ATORVASTATIN CALCIUM 10 MG], 1X/DAY
     Route: 048
  15. LEGATRIN [Concomitant]
     Dosage: UNK
  16. LEVITRA [Concomitant]
     Dosage: UNK
  17. FLEXERIL [Concomitant]
     Dosage: 10 MG, AS NEEDED
     Route: 048
  18. SYMLIN [Concomitant]
     Dosage: UNK
  19. PERCOCET [Concomitant]
     Indication: MYOFASCIAL PAIN SYNDROME
     Dosage: [OXYCODONE HYDROCHLORIDE 10 MG]/ [PARACETAMOL 325 MG] (4 TABLETS), DAILY
     Route: 048
  20. PERCOCET [Concomitant]
     Indication: DIABETIC NEUROPATHY
  21. INDOMETHACIN [Concomitant]
     Dosage: 75 MG, 1X/DAY
     Route: 048
  22. SPIRIVA [Concomitant]
     Dosage: UNK
  23. ANTIVERT ^PFIZER^ [Concomitant]
     Dosage: 12.5 MG, 2X/DAY
     Route: 048

REACTIONS (2)
  - DRUG ABUSE [None]
  - SEROTONIN SYNDROME [None]
